FAERS Safety Report 22916670 (Version 2)
Quarter: 2024Q1

REPORT INFORMATION
  Report Type: Spontaneous
  Country: US (occurrence: US)
  Receive Date: 20230907
  Receipt Date: 20240305
  Transmission Date: 20240410
  Serious: Yes (Hospitalization, Other)
  Sender: FDA-Public Use
  Company Number: US-PFIZER INC-PV202300151443

PATIENT
  Age: 54 Year
  Sex: Female

DRUGS (1)
  1. XELJANZ XR [Suspect]
     Active Substance: TOFACITINIB CITRATE
     Dosage: 11 MG

REACTIONS (9)
  - Pain [Unknown]
  - Hypoaesthesia [Unknown]
  - Rheumatoid arthritis [Not Recovered/Not Resolved]
  - Neck surgery [Unknown]
  - Procedural complication [Unknown]
  - Back disorder [Unknown]
  - Intervertebral disc disorder [Unknown]
  - Migraine [Not Recovered/Not Resolved]
  - Rash erythematous [Unknown]
